FAERS Safety Report 12581133 (Version 1)
Quarter: 2016Q3

REPORT INFORMATION
  Report Type: Spontaneous
  Country: GR (occurrence: GR)
  Receive Date: 20160721
  Receipt Date: 20160721
  Transmission Date: 20161109
  Serious: Yes (Hospitalization, Other)
  Sender: FDA-Public Use
  Company Number: GR-GLAXOSMITHKLINE-GR2016GSK102383

PATIENT
  Age: 40 Year
  Sex: Female

DRUGS (1)
  1. SUMATRIPTAN. [Suspect]
     Active Substance: SUMATRIPTAN
     Indication: MIGRAINE

REACTIONS (10)
  - Gastrointestinal wall thickening [Unknown]
  - Colitis ischaemic [Unknown]
  - Pyrexia [Unknown]
  - Fluid retention [Unknown]
  - Diarrhoea [Unknown]
  - Haematochezia [Unknown]
  - Abdominal pain lower [Unknown]
  - Overdose [Unknown]
  - Vascular stenosis [Unknown]
  - Lymphadenopathy [Unknown]
